FAERS Safety Report 5562960-5 (Version None)
Quarter: 2007Q4

REPORT INFORMATION
  Report Type: 
  Country: None (occurrence: None)
  Receive Date: 20071217
  Receipt Date: 20071206
  Transmission Date: 20080405
  Serious: Yes (Hospitalization, Other)
  Sender: FDA-Public Use
  Company Number: US-ROCHE-535378

PATIENT
  Age: 75 Year
  Sex: Female

DRUGS (6)
  1. BONIVA [Suspect]
     Indication: OSTEOPOROSIS
     Route: 042
     Dates: start: 20070416, end: 20070416
  2. TYLENOL [Concomitant]
  3. VITAMINS NOS [Concomitant]
  4. VITAMIN E [Concomitant]
  5. VITAMINE B COMPLEX [Concomitant]
  6. CALCIUM [Concomitant]

REACTIONS (7)
  - ATRIAL FIBRILLATION [None]
  - CHEST PAIN [None]
  - DIZZINESS [None]
  - ERUCTATION [None]
  - HEADACHE [None]
  - LOSS OF CONSCIOUSNESS [None]
  - PNEUMONIA CHLAMYDIAL [None]
